FAERS Safety Report 7953503-7 (Version None)
Quarter: 2011Q4

REPORT INFORMATION
  Report Type: 
  Country: None (occurrence: None)
  Receive Date: 20111202
  Receipt Date: 20111128
  Transmission Date: 20120403
  Serious: Yes (Other)
  Sender: FDA-Public Use
  Company Number: US-PFIZER INC-2011274704

PATIENT
  Sex: Female
  Weight: 68.03 kg

DRUGS (4)
  1. PRISTIQ [Suspect]
     Indication: ANXIETY
     Dosage: 50 MG, DAILY
     Route: 048
     Dates: start: 20111014, end: 20111106
  2. LIPITOR [Concomitant]
     Indication: BLOOD CHOLESTEROL INCREASED
     Dosage: 40 MG, DAILY
  3. PRAVASTATIN [Concomitant]
     Dosage: UNK
  4. PRISTIQ [Suspect]
     Indication: DEPRESSION

REACTIONS (11)
  - RESTLESS LEGS SYNDROME [None]
  - NAUSEA [None]
  - IMPAIRED DRIVING ABILITY [None]
  - ANGER [None]
  - ANXIETY [None]
  - HEADACHE [None]
  - DIZZINESS [None]
  - TINNITUS [None]
  - AMNESIA [None]
  - IRRITABILITY [None]
  - INSOMNIA [None]
